FAERS Safety Report 21872183 (Version 2)
Quarter: 2023Q1

REPORT INFORMATION
  Report Type: Report from Study
  Country: GB (occurrence: GB)
  Receive Date: 20230117
  Receipt Date: 20230118
  Transmission Date: 20230417
  Serious: Yes (Death, Life-Threatening, Other)
  Sender: FDA-Public Use
  Company Number: GB-PFIZER INC-202300018866

PATIENT

DRUGS (3)
  1. EPIRUBICIN HYDROCHLORIDE [Suspect]
     Active Substance: EPIRUBICIN HYDROCHLORIDE
     Indication: Oesophageal adenocarcinoma
     Dosage: 50 MG/M2, EVERY 3 WEEKS
  2. CISPLATIN [Suspect]
     Active Substance: CISPLATIN
     Indication: Oesophageal adenocarcinoma
     Dosage: 60 MG/M2, EVERY 3 WEEKS
  3. RALTITREXED [Suspect]
     Active Substance: RALTITREXED
     Indication: Oesophageal adenocarcinoma
     Dosage: 2.5 MG/M2, EVERY 3 WEEKS

REACTIONS (1)
  - Neutropenic sepsis [Fatal]
